FAERS Safety Report 19310607 (Version 2)
Quarter: 2021Q2

REPORT INFORMATION
  Report Type: Spontaneous
  Country: CN (occurrence: CN)
  Receive Date: 20210526
  Receipt Date: 20210601
  Transmission Date: 20210717
  Serious: Yes (Life-Threatening, Hospitalization, Other)
  Sender: FDA-Public Use
  Company Number: NVSC2021CN117407

PATIENT
  Age: 40 Year
  Sex: Male

DRUGS (12)
  1. DEXAMETHASONE. [Concomitant]
     Active Substance: DEXAMETHASONE
     Indication: SKIN LESION
     Dosage: UNK
     Route: 061
  2. TEGRETOL [Suspect]
     Active Substance: CARBAMAZEPINE
     Indication: TRIGEMINAL NEURALGIA
     Dosage: 1 DF, (1 TABLET WHEN THE PAIN OCCUR, A TOTAL OF ABOUT 7 TABLETS)
     Route: 065
  3. LANSOPRAZOLE. [Concomitant]
     Active Substance: LANSOPRAZOLE
     Indication: STRESS ULCER
  4. CYPROHEPTADINE HYDROCHLORIDE. [Concomitant]
     Active Substance: CYPROHEPTADINE HYDROCHLORIDE
     Indication: PRODUCT USED FOR UNKNOWN INDICATION
     Dosage: UNK
     Route: 065
  5. LEVOCETIRIZINE [Concomitant]
     Active Substance: LEVOCETIRIZINE
     Indication: PRODUCT USED FOR UNKNOWN INDICATION
     Dosage: 5 MG, QD
     Route: 065
  6. LANSOPRAZOLE. [Concomitant]
     Active Substance: LANSOPRAZOLE
     Indication: PROPHYLAXIS
     Dosage: UNK
     Route: 065
  7. CHLORPHENAMINE MALEATE [Concomitant]
     Active Substance: CHLORPHENIRAMINE MALEATE
     Indication: PRODUCT USED FOR UNKNOWN INDICATION
     Dosage: UNK
     Route: 065
  8. METHYLPREDNISOLONE. [Concomitant]
     Active Substance: METHYLPREDNISOLONE
     Indication: PRODUCT USED FOR UNKNOWN INDICATION
     Dosage: 160 MG, QD (IVGTT)
     Route: 065
  9. VITAMIN C [Concomitant]
     Active Substance: ASCORBIC ACID
     Dosage: 2 G, QD (IVGTT)
     Route: 065
  10. VITAMIN C [Concomitant]
     Active Substance: ASCORBIC ACID
     Indication: CAPILLARY PERMEABILITY
     Dosage: UNK
     Route: 065
  11. HYALURONIC ACID [Concomitant]
     Active Substance: HYALURONIC ACID
     Indication: SKIN LESION
     Dosage: UNK
     Route: 061
  12. SUCRALFATE. [Concomitant]
     Active Substance: SUCRALFATE
     Indication: GASTROINTESTINAL MUCOSAL DISORDER
     Dosage: UNK (SUSPENSION GEL)
     Route: 065

REACTIONS (22)
  - Cardiac failure [Unknown]
  - Infection [Unknown]
  - Scrotal ulcer [Recovering/Resolving]
  - Pruritus [Recovering/Resolving]
  - Oliguria [Unknown]
  - Hypertriglyceridaemia [Recovering/Resolving]
  - Drug hypersensitivity [Recovering/Resolving]
  - Blister [Unknown]
  - Drug eruption [Recovering/Resolving]
  - Erythema [Recovering/Resolving]
  - Gastric ulcer [Unknown]
  - Diarrhoea [Unknown]
  - Mouth ulceration [Recovering/Resolving]
  - Skin infection [Recovering/Resolving]
  - Anaphylactic shock [Unknown]
  - Anaphylactic reaction [Unknown]
  - Oropharyngeal pain [Unknown]
  - Poor quality sleep [Unknown]
  - Sinus tachycardia [Recovering/Resolving]
  - Pyrexia [Unknown]
  - Respiratory failure [Unknown]
  - Renal failure [Unknown]
